FAERS Safety Report 4548528-8 (Version None)
Quarter: 2005Q1

REPORT INFORMATION
  Report Type: 
  Country: None (occurrence: None)
  Receive Date: 20050110
  Receipt Date: 20041230
  Transmission Date: 20050727
  Serious: Yes (Hospitalization)
  Sender: FDA-Public Use
  Company Number: FR-BRISTOL-MYERS SQUIBB COMPANY-12813598

PATIENT
  Age: 39 Year
  Sex: Male

DRUGS (6)
  1. ENDOXAN [Suspect]
     Indication: HODGKIN'S DISEASE NODULAR SCLEROSIS STAGE III
     Route: 042
     Dates: start: 20030617, end: 20030617
  2. BLEOMYCIN SULFATE [Suspect]
     Indication: HODGKIN'S DISEASE NODULAR SCLEROSIS STAGE III
     Route: 042
     Dates: start: 20040624, end: 20040624
  3. DOXORUBICIN HCL [Suspect]
     Indication: HODGKIN'S DISEASE NODULAR SCLEROSIS STAGE III
     Route: 042
     Dates: start: 20030617, end: 20030617
  4. NATULAN [Suspect]
     Indication: HODGKIN'S DISEASE NODULAR SCLEROSIS STAGE III
     Route: 048
     Dates: start: 20030624, end: 20030624
  5. ETOPOSIDE DAKOTA PHARM [Suspect]
     Indication: HODGKIN'S DISEASE NODULAR SCLEROSIS STAGE III
     Route: 042
     Dates: start: 20030619, end: 20030619
  6. VINCRISTINE [Suspect]
     Indication: HODGKIN'S DISEASE NODULAR SCLEROSIS STAGE III
     Route: 042
     Dates: start: 20030624, end: 20030624

REACTIONS (2)
  - ACUTE MYELOID LEUKAEMIA [None]
  - TREATMENT RELATED SECONDARY MALIGNANCY [None]
